FAERS Safety Report 8570622-5 (Version None)
Quarter: 2012Q3

REPORT INFORMATION
  Report Type: 
  Country: None (occurrence: None)
  Receive Date: 20120804
  Receipt Date: 20120726
  Transmission Date: 20120928
  Serious: No
  Sender: FDA-Public Use
  Company Number: US-009507513-1207USA011676

PATIENT

DRUGS (9)
  1. CENTRUM (MINERALS (UNSPECIFIED) (+) VITAMINS (UNSPECIFIED)) [Concomitant]
  2. TYLENOL (CAPLET) [Concomitant]
  3. PREMARIN [Concomitant]
  4. PEG-INTRON [Suspect]
     Indication: HEPATITIS C
     Dosage: 80 MICROGRAM, QW
     Route: 058
     Dates: start: 20120401
  5. METHYLTESTOSTERONE (ESTROGENS, CONJUGATED (+) METHYLTESTOSTERONE) [Concomitant]
  6. VICTRELIS [Suspect]
     Indication: HEPATITIS C
     Dosage: 800 MG, TID
     Route: 048
     Dates: start: 20120401
  7. RIBASPHERE [Concomitant]
  8. BUSPIRONE HCL [Concomitant]
  9. PREPARATION H HEMORRHOIDAL SUPPOSITORIES [Concomitant]

REACTIONS (5)
  - RASH [None]
  - ALOPECIA [None]
  - INSOMNIA [None]
  - FATIGUE [None]
  - PRURITUS [None]
